FAERS Safety Report 4864851-1 (Version None)
Quarter: 2005Q4

REPORT INFORMATION
  Report Type: 
  Country: None (occurrence: None)
  Receive Date: 20051201
  Receipt Date: 20050719
  Transmission Date: 20060501
  Serious: No
  Sender: FDA-Public Use
  Company Number: 2005PV000468

PATIENT
  Age: 64 Year
  Sex: Female
  Weight: 75.7507 kg

DRUGS (6)
  1. BYETTA [Suspect]
     Indication: DIABETES MELLITUS NON-INSULIN-DEPENDENT
     Dosage: 5 MCG;BID;SC
     Route: 058
     Dates: start: 20050620, end: 20050718
  2. PRILOSEC [Concomitant]
  3. GLUCOPHAGE [Concomitant]
  4. EVISTA [Concomitant]
  5. UNSPECIFIED LIPID MEDICATION(S) [Concomitant]
  6. ANTIHYPERTENSIVES [Concomitant]

REACTIONS (6)
  - ABDOMINAL DISTENSION [None]
  - BREATH ODOUR [None]
  - DISCOMFORT [None]
  - ERUCTATION [None]
  - NAUSEA [None]
  - WEIGHT DECREASED [None]
